FAERS Safety Report 6922629-9 (Version None)
Quarter: 2010Q3

REPORT INFORMATION
  Report Type: 
  Country: None (occurrence: None)
  Receive Date: 20100811
  Receipt Date: 20100615
  Transmission Date: 20110219
  Serious: Yes (Hospitalization)
  Sender: FDA-Public Use
  Company Number: OTH-PAT 2010002

PATIENT
  Age: 4 Year
  Sex: Female

DRUGS (1)
  1. CYSTADANE [Suspect]
     Dosage: 5 G EVERY DAY ORAL
     Route: 048

REACTIONS (1)
  - KIDNEY INFECTION [None]
